FAERS Safety Report 15824690 (Version 2)
Quarter: 2019Q1

REPORT INFORMATION
  Report Type: Report from Study
  Country: IL (occurrence: IL)
  Receive Date: 20190115
  Receipt Date: 20190122
  Transmission Date: 20190417
  Serious: Yes (Hospitalization)
  Sender: FDA-Public Use
  Company Number: IL-ROCHE-2204097

PATIENT
  Age: 75 Year
  Sex: Female
  Weight: 56 kg

DRUGS (11)
  1. OXYGEN. [Concomitant]
     Active Substance: OXYGEN
     Dosage: 5 L/M
     Route: 050
     Dates: start: 20180316, end: 20180320
  2. OXYGEN. [Concomitant]
     Active Substance: OXYGEN
     Dosage: 3 L/M
     Route: 050
     Dates: start: 20180321
  3. ESOMEPRAZOLE. [Concomitant]
     Active Substance: ESOMEPRAZOLE MAGNESIUM
     Route: 048
     Dates: start: 20180316
  4. ZOPICLONE [Concomitant]
     Active Substance: ZOPICLONE
  5. BLINDED PIRFENIDONE [Suspect]
     Active Substance: PIRFENIDONE
     Indication: INTERSTITIAL LUNG DISEASE
     Route: 048
  6. BUDESONIDE/FORMOTEROL [Concomitant]
     Active Substance: BUDESONIDE\FORMOTEROL
     Dosage: 2 PUFF INHALANT
     Route: 065
  7. ALPRAZOLAM. [Concomitant]
     Active Substance: ALPRAZOLAM
     Route: 048
  8. MIRTAZAPINE. [Concomitant]
     Active Substance: MIRTAZAPINE
     Route: 048
  9. OXYGEN. [Concomitant]
     Active Substance: OXYGEN
     Indication: DYSPNOEA
     Dosage: 3 L/M
     Route: 050
     Dates: end: 20180316
  10. AUGMENTIN [Concomitant]
     Active Substance: AMOXICILLIN\CLAVULANATE POTASSIUM
     Route: 048
     Dates: start: 20181012
  11. PIRFENIDONE. [Suspect]
     Active Substance: PIRFENIDONE
     Indication: INTERSTITIAL LUNG DISEASE
     Dosage: DATE OF MOST RECENT DOSE OF OPEN LABEL PIRFENIDONE PRIOR TO SAE ONSET: 13/OCT/2018,?DOSE OF LAST DOS
     Route: 048
     Dates: start: 20180104

REACTIONS (1)
  - Hypercapnia [Recovered/Resolved]

NARRATIVE: CASE EVENT DATE: 20181014
